FAERS Safety Report 9921976 (Version 1)
Quarter: 2014Q1

REPORT INFORMATION
  Report Type: Spontaneous
  Country: US (occurrence: None)
  Receive Date: 20140221
  Receipt Date: 20140221
  Transmission Date: 20141002
  Serious: Yes (Life-Threatening, Hospitalization, Disabling, Other)
  Sender: FDA-Public Use
  Company Number: None

PATIENT
  Age: 30 Year
  Sex: Female
  Weight: 51.26 kg

DRUGS (1)
  1. DOXYCYCLINE HYCLATE [Suspect]
     Indication: ROSACEA
     Dosage: 2.5 WEEKS , 18 DAYS
     Route: 048

REACTIONS (14)
  - Night sweats [None]
  - Palpitations [None]
  - Migraine [None]
  - Diarrhoea [None]
  - Nausea [None]
  - Decreased appetite [None]
  - Hypoaesthesia [None]
  - Anxiety [None]
  - Paranoia [None]
  - Suicidal ideation [None]
  - Panic attack [None]
  - Fear [None]
  - Confusional state [None]
  - Feeling abnormal [None]
